FAERS Safety Report 8943458 (Version 2)
Quarter: 2014Q3

REPORT INFORMATION
  Report Type: Report from Study
  Country: BD (occurrence: BD)
  Receive Date: 20121204
  Receipt Date: 20140821
  Transmission Date: 20150326
  Serious: Yes (Death)
  Sender: FDA-Public Use
  Company Number: PHHY2012BD110846

PATIENT
  Age: 70 Year
  Sex: Male

DRUGS (1)
  1. EXELON PATCH [Suspect]
     Active Substance: RIVASTIGMINE
     Indication: DEMENTIA
     Dosage: 10 CM PATCH DAILY (9.5 MG/24HOURS)
     Route: 062
     Dates: start: 201208

REACTIONS (1)
  - Cerebrovascular accident [Fatal]
